FAERS Safety Report 6834347-6 (Version None)
Quarter: 2010Q3

REPORT INFORMATION
  Report Type: 
  Country: None (occurrence: None)
  Receive Date: 20100712
  Receipt Date: 20070425
  Transmission Date: 20110219
  Serious: No
  Sender: FDA-Public Use
  Company Number: US-PFIZER INC-2007034547

PATIENT
  Sex: Female
  Weight: 79.545 kg

DRUGS (4)
  1. CHANTIX [Suspect]
     Indication: SMOKING CESSATION THERAPY
     Dates: start: 20070423
  2. CHOLESTEROL [Concomitant]
  3. DRUG USED IN DIABETES [Concomitant]
     Route: 048
  4. ADVIL LIQUI-GELS [Concomitant]
     Indication: HEADACHE

REACTIONS (1)
  - HEADACHE [None]
